FAERS Safety Report 15318336 (Version 1)
Quarter: 2018Q4

REPORT INFORMATION
  Report Type: Spontaneous
  Country: DE (occurrence: DE)
  Receive Date: 20180825
  Receipt Date: 20180825
  Transmission Date: 20190204
  Serious: Yes (Hospitalization)
  Sender: FDA-Public Use
  Company Number: DE-TORRENT-00009603

PATIENT
  Age: 88 Year
  Sex: Female
  Weight: 52 kg

DRUGS (11)
  1. ATORVASTATIN [Concomitant]
     Active Substance: ATORVASTATIN
     Indication: PRODUCT USED FOR UNKNOWN INDICATION
     Dosage: 40 MG, 0-0-1-0,
     Route: 048
  2. VIGANTOLETTEN 1000I.E. [Concomitant]
     Indication: PRODUCT USED FOR UNKNOWN INDICATION
     Dosage: 1000 IE, 1-0-0-0,
     Route: 048
  3. LISINOPRIL. [Concomitant]
     Active Substance: LISINOPRIL
     Indication: PRODUCT USED FOR UNKNOWN INDICATION
     Dosage: 30 MG, 0.5-0-0.5-0,
     Route: 048
  4. EXELON 4,6 MG/24 STUNDEN [Concomitant]
     Indication: PRODUCT USED FOR UNKNOWN INDICATION
     Dosage: 4.6 MG / TAG, 1-0-0-0, PFLASTER TRANSDERMAL
     Route: 062
  5. NOVALGIN (METAMIZOLE SODIUM) [Concomitant]
     Active Substance: METAMIZOLE SODIUM
     Indication: PRODUCT USED FOR UNKNOWN INDICATION
     Dosage: 500 MG,
     Route: 048
  6. NEBIVOLOL. [Suspect]
     Active Substance: NEBIVOLOL
     Indication: PRODUCT USED FOR UNKNOWN INDICATION
     Dosage: 10 , 1-0-0-0,
     Route: 048
  7. ALENDRONIC ACID [Concomitant]
     Active Substance: ALENDRONIC ACID
     Indication: PRODUCT USED FOR UNKNOWN INDICATION
     Dosage: 70 MG / WOCHE, 1-0-0-0,
     Route: 048
  8. TORASEMID [Concomitant]
     Active Substance: TORSEMIDE
     Indication: PRODUCT USED FOR UNKNOWN INDICATION
     Dosage: 5 MG, 1-0-0-0,
     Route: 048
  9. BISOPROLOL-RATIOPHARM 10MG [Suspect]
     Active Substance: BISOPROLOL FUMARATE
     Indication: PRODUCT USED FOR UNKNOWN INDICATION
     Dosage: 10 MG, 1-0-0-0
     Route: 048
  10. LEVOTHYROXIN SODIUM [Concomitant]
     Active Substance: LEVOTHYROXINE SODIUM
     Indication: PRODUCT USED FOR UNKNOWN INDICATION
     Dosage: 50 G, 1-0-0-0,
     Route: 048
  11. ASS 100MG HEXAL [Concomitant]
     Indication: PRODUCT USED FOR UNKNOWN INDICATION
     Dosage: 100 MG, 1-0-0-0,
     Route: 048

REACTIONS (4)
  - Product prescribing error [Unknown]
  - Hypertensive emergency [Unknown]
  - Bradycardia [Unknown]
  - Hypertension [Unknown]
